FAERS Safety Report 24104390 (Version 1)
Quarter: 2024Q3

REPORT INFORMATION
  Report Type: Spontaneous
  Country: US (occurrence: None)
  Receive Date: 20240716
  Receipt Date: 20240716
  Transmission Date: 20241016
  Serious: No
  Sender: Public
  Company Number: None

PATIENT
  Age: 53 Year
  Sex: Female

DRUGS (1)
  1. TERIFLUNOMIDE [Suspect]
     Active Substance: TERIFLUNOMIDE
     Indication: Multiple sclerosis
     Dosage: FREQUENCY : DAILY;?
     Route: 048
     Dates: start: 20230408

REACTIONS (10)
  - Dyspnoea [None]
  - Weight increased [None]
  - Peripheral swelling [None]
  - Cough [None]
  - Skin exfoliation [None]
  - Skin haemorrhage [None]
  - Skin ulcer [None]
  - Hypoaesthesia [None]
  - Paraesthesia oral [None]
  - Genital ulceration [None]

NARRATIVE: CASE EVENT DATE: 20240601
